FAERS Safety Report 18884213 (Version 2)
Quarter: 2021Q1

REPORT INFORMATION
  Report Type: Other
  Country: US (occurrence: US)
  Receive Date: 20210212
  Receipt Date: 20210317
  Transmission Date: 20210420
  Serious: Yes (Other)
  Sender: FDA-Public Use
  Company Number: US-ROCHE-2766075

PATIENT
  Sex: Female

DRUGS (9)
  1. LUCENTIS [Suspect]
     Active Substance: RANIBIZUMAB
     Indication: DIABETIC RETINOPATHY
  2. LUCENTIS [Suspect]
     Active Substance: RANIBIZUMAB
  3. LUCENTIS [Suspect]
     Active Substance: RANIBIZUMAB
  4. LUCENTIS [Suspect]
     Active Substance: RANIBIZUMAB
  5. LUCENTIS [Suspect]
     Active Substance: RANIBIZUMAB
     Indication: TYPE 2 DIABETES MELLITUS
     Dosage: INJECT 0.3MG VIA INTRAVITREAL ADMINISTRATION INTO EACH EYE EVERY MONTH, PFS
     Route: 050
  6. LUCENTIS [Suspect]
     Active Substance: RANIBIZUMAB
  7. LUCENTIS [Suspect]
     Active Substance: RANIBIZUMAB
  8. LUCENTIS [Suspect]
     Active Substance: RANIBIZUMAB
     Indication: MACULAR OEDEMA
  9. LUCENTIS [Suspect]
     Active Substance: RANIBIZUMAB

REACTIONS (2)
  - Syringe issue [Unknown]
  - No adverse event [Unknown]
